FAERS Safety Report 18124317 (Version 2)
Quarter: 2020Q4

REPORT INFORMATION
  Report Type: Report from Study
  Country: US (occurrence: US)
  Receive Date: 20200807
  Receipt Date: 20201001
  Transmission Date: 20210113
  Serious: Yes (Hospitalization)
  Sender: FDA-Public Use
  Company Number: US-BIOGEN-2020BI00906507

PATIENT
  Sex: Female

DRUGS (2)
  1. TYSABRI [Suspect]
     Active Substance: NATALIZUMAB
     Indication: MULTIPLE SCLEROSIS
     Route: 065
     Dates: start: 20120125, end: 202003
  2. TYSABRI [Suspect]
     Active Substance: NATALIZUMAB
     Route: 065
     Dates: start: 20120125

REACTIONS (2)
  - Pneumonia [Recovered/Resolved with Sequelae]
  - Sputum retention [Recovered/Resolved with Sequelae]

NARRATIVE: CASE EVENT DATE: 2020
